FAERS Safety Report 17483185 (Version 1)
Quarter: 2020Q1

REPORT INFORMATION
  Report Type: Spontaneous
  Country: US (occurrence: US)
  Receive Date: 20200228
  Receipt Date: 20200228
  Transmission Date: 20200409
  Serious: No
  Sender: FDA-Public Use
  Company Number: None

PATIENT
  Age: 25 Year
  Sex: Female
  Weight: 69.75 kg

DRUGS (11)
  1. B2 [Concomitant]
  2. UBRELVY [Suspect]
     Active Substance: UBROGEPANT
     Indication: MIGRAINE
     Dosage: ?          QUANTITY:1 TABLET(S);?
     Route: 048
     Dates: start: 20200220
  3. TOPIRAMATE. [Concomitant]
     Active Substance: TOPIRAMATE
  4. HYDROCODONE [Concomitant]
     Active Substance: HYDROCODONE
  5. EMGALITY [Concomitant]
     Active Substance: GALCANEZUMAB-GNLM
  6. ALBUTEROL. [Concomitant]
     Active Substance: ALBUTEROL
  7. TIZANAADINE [Concomitant]
  8. MAGNESIUM [Concomitant]
     Active Substance: MAGNESIUM
  9. UBREVLVY [Concomitant]
  10. PROMETHAZINE [Concomitant]
     Active Substance: PROMETHAZINE HYDROCHLORIDE
  11. GABAPENTIN. [Concomitant]
     Active Substance: GABAPENTIN

REACTIONS (3)
  - Tremor [None]
  - Dizziness [None]
  - Hallucination, visual [None]
